FAERS Safety Report 25545641 (Version 2)
Quarter: 2025Q3

REPORT INFORMATION
  Report Type: Spontaneous
  Country: CA (occurrence: CA)
  Receive Date: 20250712
  Receipt Date: 20250717
  Transmission Date: 20251020
  Serious: Yes (Other)
  Sender: CELLTRION
  Company Number: CA-CELLTRION INC.-2025CA013732

PATIENT

DRUGS (3)
  1. INFLIXIMAB [Suspect]
     Active Substance: INFLIXIMAB
     Indication: Colitis ulcerative
     Route: 042
     Dates: start: 20250505, end: 20250505
  2. INFLIXIMAB [Suspect]
     Active Substance: INFLIXIMAB
     Indication: Colitis ulcerative
     Dosage: 240 MG EVERY 2 WEEKS AS MAINTENANCE
     Route: 058
     Dates: start: 20250616
  3. INFLIXIMAB [Suspect]
     Active Substance: INFLIXIMAB
     Dosage: 240 MG EVERY 2 WEEKS AS MAINTENANCE
     Route: 058
     Dates: start: 20250630

REACTIONS (6)
  - Colitis ulcerative [Unknown]
  - Off label use [Unknown]
  - Therapy cessation [Unknown]
  - Therapy change [Unknown]
  - Underdose [Unknown]
  - Intentional product use issue [Unknown]

NARRATIVE: CASE EVENT DATE: 20250505
